FAERS Safety Report 7355903-5 (Version None)
Quarter: 2011Q1

REPORT INFORMATION
  Report Type: 
  Country: None (occurrence: None)
  Receive Date: 20110316
  Receipt Date: 20110310
  Transmission Date: 20110831
  Serious: Yes (Hospitalization)
  Sender: FDA-Public Use
  Company Number: PL-PFIZER INC-2011042659

PATIENT
  Sex: Female

DRUGS (2)
  1. KETOCONAZOLE [Interacting]
     Dosage: UNK
     Dates: start: 20110209, end: 20110217
  2. XANAX [Suspect]
     Indication: FEELING JITTERY
     Dosage: 0.5 MG, 1X/DAY
     Route: 048
     Dates: start: 20110101, end: 20110304

REACTIONS (6)
  - DRUG INTERACTION [None]
  - NAUSEA [None]
  - SOMNOLENCE [None]
  - POOR QUALITY SLEEP [None]
  - HEADACHE [None]
  - TROPICAL INFECTIOUS DISEASE [None]
